FAERS Safety Report 11270968 (Version 1)
Quarter: 2015Q3

REPORT INFORMATION
  Report Type: Spontaneous
  Country: US (occurrence: US)
  Receive Date: 20150714
  Receipt Date: 20150714
  Transmission Date: 20151125
  Serious: No
  Sender: FDA-Public Use
  Company Number: US-BAXALTA-2015BLT000399

PATIENT
  Age: 79 Year
  Sex: Female

DRUGS (2)
  1. HYQVIA [Suspect]
     Active Substance: HUMAN IMMUNOGLOBULIN G\HYALURONIDASE RECOMBINANT HUMAN
     Indication: HYPOGAMMAGLOBULINAEMIA
     Dosage: 10 G, UNK, RAMP UP
     Route: 058
     Dates: start: 20150627
  2. HYQVIA [Suspect]
     Active Substance: HUMAN IMMUNOGLOBULIN G\HYALURONIDASE RECOMBINANT HUMAN
     Dosage: SECOND RAM UP DOSE
     Route: 058
     Dates: start: 20150704

REACTIONS (3)
  - Therapy cessation [Unknown]
  - Drug administered in wrong device [Unknown]
  - No adverse event [Recovered/Resolved]

NARRATIVE: CASE EVENT DATE: 20150704
